FAERS Safety Report 8889835 (Version 2)
Quarter: 2012Q4

REPORT INFORMATION
  Report Type: 
  Country: DE (occurrence: DE)
  Receive Date: 20121107
  Receipt Date: 20121120
  Transmission Date: 20130627
  Serious: Yes (Hospitalization)
  Sender: FDA-Public Use
  Company Number: DE-ELI_LILLY_AND_COMPANY-DE201210008789

PATIENT
  Sex: Male

DRUGS (5)
  1. ALIMTA [Suspect]
     Indication: MESOTHELIOMA
     Dosage: 500 mg/m2, UNK
  2. CISPLATIN [Concomitant]
     Indication: MESOTHELIOMA
     Dosage: UNK
  3. FOLIC ACID [Concomitant]
  4. VITAMIN B12 [Concomitant]
  5. FUROSEMIDE [Concomitant]

REACTIONS (9)
  - Renal impairment [Unknown]
  - Hypokalaemia [Unknown]
  - Hypomagnesaemia [Unknown]
  - Blood calcium decreased [Unknown]
  - General physical health deterioration [Unknown]
  - Dizziness [Unknown]
  - Hypoaesthesia [Unknown]
  - Tetany [Unknown]
  - Malaise [Unknown]
